FAERS Safety Report 6047926-3 (Version None)
Quarter: 2009Q1

REPORT INFORMATION
  Report Type: 
  Country: None (occurrence: None)
  Receive Date: 20090123
  Receipt Date: 20090114
  Transmission Date: 20090719
  Serious: Yes (Hospitalization)
  Sender: FDA-Public Use
  Company Number: US-BAYER-200841761NA

PATIENT
  Age: 68 Year
  Sex: Male
  Weight: 76 kg

DRUGS (10)
  1. SORAFENIB [Suspect]
     Indication: HEPATIC NEOPLASM MALIGNANT NON-RESECTABLE
     Dosage: TOTAL DAILY DOSE: 800 MG  UNIT DOSE: 200 MG
     Route: 048
     Dates: start: 20081223, end: 20081227
  2. BIOSPHERES/CISPLATIN, IRA-RHA [Suspect]
     Indication: HEPATIC NEOPLASM MALIGNANT NON-RESECTABLE
     Dates: start: 20081222, end: 20081222
  3. NADOLOL [Concomitant]
     Route: 048
  4. AMLODIPINE BESYLATE [Concomitant]
     Route: 048
  5. HYDROCHCHLOROTHIAZIDE [Concomitant]
     Route: 048
  6. ASPIRIN [Concomitant]
     Route: 048
  7. IBUPROFEN [Concomitant]
     Route: 048
  8. PROTONIX [Concomitant]
     Route: 048
  9. LACTULOSE [Concomitant]
  10. FENTANYL [Concomitant]
     Route: 062
     Dates: start: 20081223

REACTIONS (4)
  - AMMONIA INCREASED [None]
  - CONFUSIONAL STATE [None]
  - DEHYDRATION [None]
  - LIVER FUNCTION TEST ABNORMAL [None]
